FAERS Safety Report 8582622-X (Version None)
Quarter: 2012Q3

REPORT INFORMATION
  Report Type: 
  Country: None (occurrence: None)
  Receive Date: 20120809
  Receipt Date: 20120716
  Transmission Date: 20120928
  Serious: Yes (Life-Threatening)
  Sender: FDA-Public Use
  Company Number: DE-ROCHE-1098385

PATIENT
  Age: 61 Year
  Sex: Male
  Weight: 70 kg

DRUGS (2)
  1. ACTIVASE [Suspect]
     Indication: CEREBRAL INFARCTION
     Route: 042
     Dates: start: 20120131, end: 20120131
  2. ACTIVASE [Suspect]
     Route: 042
     Dates: start: 20120131, end: 20120131

REACTIONS (2)
  - ENDOTRACHEAL INTUBATION [None]
  - ANAPHYLACTIC REACTION [None]
